FAERS Safety Report 8168659-3 (Version None)
Quarter: 2012Q1

REPORT INFORMATION
  Report Type: 
  Country: None (occurrence: None)
  Receive Date: 20120227
  Receipt Date: 20120217
  Transmission Date: 20120608
  Serious: Yes (Other)
  Sender: FDA-Public Use
  Company Number: US-ASTRAZENECA-2012SE11768

PATIENT
  Sex: Female

DRUGS (6)
  1. LISINOPRIL [Suspect]
     Route: 048
  2. LOMOTIL [Concomitant]
  3. LOVASTATIN [Concomitant]
     Dosage: 1 TIME AT NIGHT
  4. CHOLESTYRAMINE [Concomitant]
     Route: 048
  5. ISORDIL [Concomitant]
     Dates: start: 19910101
  6. EXEDRIN [Concomitant]
     Indication: MIGRAINE

REACTIONS (2)
  - INCONTINENCE [None]
  - MYOCARDIAL INFARCTION [None]
